FAERS Safety Report 7397238-0 (Version None)
Quarter: 2011Q2

REPORT INFORMATION
  Report Type: 
  Country: None (occurrence: None)
  Receive Date: 20110406
  Receipt Date: 20110324
  Transmission Date: 20111010
  Serious: Yes (Hospitalization)
  Sender: FDA-Public Use
  Company Number: CA-ASTRAZENECA-2011SE16681

PATIENT
  Age: 80 Year
  Sex: Male

DRUGS (3)
  1. ZOLADEX [Suspect]
     Route: 058
     Dates: start: 20000101, end: 20110101
  2. CASODEX [Suspect]
     Route: 048
     Dates: start: 20000101, end: 20100101
  3. BLOOD PRESSURE MEDICATION [Concomitant]

REACTIONS (1)
  - SPLENIC NEOPLASM MALIGNANCY UNSPECIFIED [None]
